FAERS Safety Report 8173669-6 (Version None)
Quarter: 2012Q1

REPORT INFORMATION
  Report Type: 
  Country: None (occurrence: None)
  Receive Date: 20120229
  Receipt Date: 20120223
  Transmission Date: 20120608
  Serious: Yes (Hospitalization)
  Sender: FDA-Public Use
  Company Number: FR-BAYER-2012-018654

PATIENT
  Age: 85 Year
  Sex: Female

DRUGS (9)
  1. COLCHICINE [Suspect]
     Dosage: UNK
     Dates: start: 20111101
  2. CIPROFLOXACIN [Suspect]
     Indication: SKIN ULCER
     Dosage: 1 DF, BID
     Route: 048
     Dates: start: 20111102, end: 20111108
  3. TRAMADOL HCL [Suspect]
     Indication: PAIN
     Dosage: 1 DF, BID
     Route: 048
     Dates: start: 20111103, end: 20111108
  4. LASIX [Concomitant]
     Dosage: 0.5 DF, QD
     Route: 048
  5. ARIMIDEX [Concomitant]
     Dosage: 1 DF, QD
     Route: 048
  6. IMOVANE [Concomitant]
     Dosage: 1 DF, QD
     Route: 048
  7. BISOPROLOL FUMARATE [Concomitant]
  8. COLCHICINE [Suspect]
     Indication: HYPERURICAEMIA
     Dosage: 1 DF, TID
     Route: 048
     Dates: start: 20111107, end: 20111108
  9. RAMIPRIL [Concomitant]
     Dosage: 1 DF, QD
     Route: 048

REACTIONS (3)
  - CONFUSIONAL STATE [None]
  - AGGRESSION [None]
  - HALLUCINATION [None]
